FAERS Safety Report 8890649 (Version 1)
Quarter: 2012Q4

REPORT INFORMATION
  Report Type: 
  Country: GB (occurrence: GB)
  Receive Date: 20121107
  Receipt Date: 20121107
  Transmission Date: 20130627
  Serious: Yes (Other)
  Sender: FDA-Public Use
  Company Number: GB-JNJFOC-20121102153

PATIENT
  Age: 14 Month
  Sex: Female

DRUGS (2)
  1. CALPOL [Suspect]
     Route: 065
  2. CALPOL [Suspect]
     Indication: PRODUCT USED FOR UNKNOWN INDICATION
     Route: 065

REACTIONS (11)
  - Abnormal behaviour [Unknown]
  - Choking [Unknown]
  - Opisthotonus [Unknown]
  - Screaming [Unknown]
  - Pharyngeal erythema [Unknown]
  - Vomiting [Recovered/Resolved]
  - Hypersomnia [Unknown]
  - Diarrhoea [Recovered/Resolved]
  - Abdominal pain upper [Unknown]
  - Crying [Unknown]
  - Gastroenteritis viral [None]
